FAERS Safety Report 9092526 (Version 1)
Quarter: 2013Q1

REPORT INFORMATION
  Report Type: Spontaneous
  Country: US (occurrence: None)
  Receive Date: 20130213
  Receipt Date: 20130213
  Transmission Date: 20140127
  Serious: Yes (Disabling, Other)
  Sender: FDA-Public Use
  Company Number: None

PATIENT
  Age: 42 Year
  Sex: Female
  Weight: 68.04 kg

DRUGS (1)
  1. CIPROFLOXACIN HCL [Suspect]
     Indication: SINUSITIS
     Route: 048
     Dates: start: 20130125, end: 20130131

REACTIONS (13)
  - Nausea [None]
  - Abdominal discomfort [None]
  - Local swelling [None]
  - Pain in extremity [None]
  - Paraesthesia [None]
  - Hypoaesthesia [None]
  - Neuropathy peripheral [None]
  - Eye irritation [None]
  - Photophobia [None]
  - Vision blurred [None]
  - Myalgia [None]
  - Anxiety [None]
  - Quality of life decreased [None]
